FAERS Safety Report 11797929 (Version 4)
Quarter: 2016Q1

REPORT INFORMATION
  Report Type: Spontaneous
  Country: IL (occurrence: IL)
  Receive Date: 20151203
  Receipt Date: 20160128
  Transmission Date: 20160525
  Serious: Yes (Hospitalization)
  Sender: FDA-Public Use
  Company Number: IL-JNJFOC-20151200377

PATIENT
  Sex: Male

DRUGS (1)
  1. SIMPONI [Suspect]
     Active Substance: GOLIMUMAB
     Indication: RHEUMATOID ARTHRITIS
     Route: 058
     Dates: start: 20151103

REACTIONS (4)
  - Activities of daily living impaired [Not Recovered/Not Resolved]
  - Pneumonia [Recovering/Resolving]
  - Disease progression [Recovering/Resolving]
  - Weight decreased [Not Recovered/Not Resolved]
